FAERS Safety Report 8499301-X (Version None)
Quarter: 2012Q2

REPORT INFORMATION
  Report Type: 
  Country: None (occurrence: None)
  Receive Date: 20120405
  Receipt Date: 20101228
  Transmission Date: 20120825
  Serious: Yes (Other)
  Sender: FDA-Public Use
  Company Number: PHHY2010US90194

PATIENT

DRUGS (1)
  1. RECLAST [Suspect]
     Dosage: 5 MG, INFUSION

REACTIONS (1)
  - PARAESTHESIA [None]
